FAERS Safety Report 15370373 (Version 1)
Quarter: 2018Q3

REPORT INFORMATION
  Report Type: Report from Study
  Country: US (occurrence: US)
  Receive Date: 20180911
  Receipt Date: 20180911
  Transmission Date: 20181010
  Serious: Yes (Death)
  Sender: FDA-Public Use
  Company Number: US-MYLANLABS-2018M1066152

PATIENT
  Age: 84 Year
  Sex: Male

DRUGS (1)
  1. AZACITIDINE. [Suspect]
     Active Substance: AZACITIDINE
     Indication: MYELODYSPLASTIC SYNDROME
     Dosage: EACH TREATMENT CYCLE WAS OF 28 DAYS. HE DIED DURING THE FIRST CYCLE OF AZACITIDINE.
     Route: 048

REACTIONS (2)
  - Systemic infection [Fatal]
  - Septic shock [Fatal]
